FAERS Safety Report 4695986-4 (Version None)
Quarter: 2005Q2

REPORT INFORMATION
  Report Type: 
  Country: None (occurrence: None)
  Receive Date: 20050621
  Receipt Date: 20040624
  Transmission Date: 20051028
  Serious: Yes (Other)
  Sender: FDA-Public Use
  Company Number: 200511664JP

PATIENT
  Age: 70 Year
  Sex: Male
  Weight: 56.9 kg

DRUGS (13)
  1. ARAVA [Suspect]
     Indication: RHEUMATOID ARTHRITIS
     Route: 048
     Dates: start: 20040121, end: 20040525
  2. LORCAM [Concomitant]
     Indication: PAIN
     Dosage: DOSE: 1 TABLET
     Route: 048
     Dates: start: 20031104
  3. AMOBAN [Concomitant]
     Indication: INSOMNIA
     Dosage: DOSE: 1 TABLET/DAY
     Route: 048
     Dates: start: 20030506
  4. PURSENNID [Concomitant]
     Indication: CONSTIPATION
     Dosage: DOSE: 1 TABLET
     Route: 048
     Dates: start: 20020625, end: 20040624
  5. LOXONIN [Concomitant]
     Indication: PAIN
     Dosage: DOSE: 2 TABLETS/DAY
     Route: 048
     Dates: start: 20011113
  6. ADALAT [Concomitant]
     Indication: HYPERTENSION
     Dosage: DOSE: 1 TABLET/DAY
     Route: 048
     Dates: start: 20020618, end: 20040624
  7. PREDONINE [Concomitant]
     Indication: RHEUMATOID ARTHRITIS
     Dosage: DOSE: 2 TABLETS/DAY
     Route: 048
     Dates: start: 20040120, end: 20040301
  8. GASTER [Concomitant]
     Indication: GASTRITIS
     Dosage: DOSE: 2 TABLETS/DAY
     Route: 048
     Dates: start: 20040120
  9. KELNAC [Concomitant]
     Indication: GASTRITIS
     Dosage: DOSE: 2 CAPSULES
     Route: 048
     Dates: start: 20020115
  10. DEPAS [Concomitant]
     Indication: ANXIETY
     Dosage: DOSE: 1 TABLT/DAY
     Route: 048
     Dates: start: 20040413
  11. PAXIL [Concomitant]
     Indication: ANXIETY
     Dosage: DOSE: 1 TABLET/DAY
     Route: 048
     Dates: start: 20040413
  12. LIMETHASON [Concomitant]
     Indication: RHEUMATOID ARTHRITIS
     Dosage: DOSE: 1 AMPULE/2WEEKS
     Route: 041
     Dates: start: 20040413
  13. NUTROPIN [Concomitant]
     Indication: PAIN
     Dosage: DOSE: 1 AMPILE/WEEK
     Route: 041
     Dates: start: 20040413

REACTIONS (12)
  - ACUTE MYOCARDIAL INFARCTION [None]
  - BLOOD ALKALINE PHOSPHATASE INCREASED [None]
  - BLOOD IRON INCREASED [None]
  - BLOOD PRESSURE INCREASED [None]
  - CHEST X-RAY ABNORMAL [None]
  - LUNG INFECTION [None]
  - LYMPHOCYTE PERCENTAGE DECREASED [None]
  - NEUTROPHIL PERCENTAGE INCREASED [None]
  - PULMONARY MASS [None]
  - RASH [None]
  - TUBERCULOSIS [None]
  - WHITE BLOOD CELL COUNT INCREASED [None]
